FAERS Safety Report 5494046-2 (Version None)
Quarter: 2007Q4

REPORT INFORMATION
  Report Type: 
  Country: None (occurrence: None)
  Receive Date: 20071023
  Receipt Date: 20071011
  Transmission Date: 20080405
  Serious: Yes (Hospitalization, Other)
  Sender: FDA-Public Use
  Company Number: BR-PFIZER INC-2007086733

PATIENT
  Sex: Male

DRUGS (6)
  1. FRONTAL [Suspect]
     Indication: ANXIETY
     Dosage: TEXT:8 TO 9 MG
     Route: 048
  2. BEROTEC [Concomitant]
  3. ATROVENT [Concomitant]
  4. TALOFILINA [Concomitant]
  5. FORMOTEROL W/BUDESONIDE [Concomitant]
  6. REMERON [Concomitant]

REACTIONS (4)
  - DRUG DEPENDENCE [None]
  - EMPHYSEMA [None]
  - INTENTIONAL DRUG MISUSE [None]
  - NERVOUSNESS [None]
